FAERS Safety Report 12647627 (Version 1)
Quarter: 2016Q3

REPORT INFORMATION
  Report Type: Spontaneous
  Country: US (occurrence: None)
  Receive Date: 20160811
  Receipt Date: 20160811
  Transmission Date: 20161109
  Serious: Yes (Hospitalization)
  Sender: FDA-Public Use
  Company Number: None

PATIENT
  Age: 59 Year
  Sex: Male
  Weight: 87 kg

DRUGS (2)
  1. CASODEX [Suspect]
     Active Substance: BICALUTAMIDE
     Dates: end: 20160728
  2. LEUPROLIDE ACETATE. [Suspect]
     Active Substance: LEUPROLIDE ACETATE
     Dates: end: 20160615

REACTIONS (6)
  - Therapy cessation [None]
  - Chest pain [None]
  - Coronary arterial stent insertion [None]
  - Bradycardia [None]
  - Vessel puncture site haematoma [None]
  - Palpitations [None]

NARRATIVE: CASE EVENT DATE: 20160729
